FAERS Safety Report 6608272-X (Version None)
Quarter: 2010Q1

REPORT INFORMATION
  Report Type: 
  Country: None (occurrence: None)
  Receive Date: 20100223
  Receipt Date: 20100208
  Transmission Date: 20100710
  Serious: Yes (Life-Threatening, Other)
  Sender: FDA-Public Use
  Company Number: AUR-APL-2010-00284

PATIENT
  Sex: Male
  Weight: 117.9352 kg

DRUGS (6)
  1. LAMOTRIGINE [Suspect]
     Indication: GRAND MAL CONVULSION
     Dosage: 300MG-DAILY-ORAL
     Route: 048
     Dates: start: 19981101, end: 19990101
  2. LAMOTRIGINE [Suspect]
     Indication: PETIT MAL EPILEPSY
     Dosage: 300MG-DAILY-ORAL
     Route: 048
     Dates: start: 19981101, end: 19990101
  3. GABAPENTIN [Suspect]
     Indication: GRAND MAL CONVULSION
     Dosage: 900MG-DAILY-ORAL
     Route: 048
     Dates: start: 19981101, end: 19990101
  4. GABAPENTIN [Suspect]
     Indication: PETIT MAL EPILEPSY
     Dosage: 900MG-DAILY-ORAL
     Route: 048
     Dates: start: 19981101, end: 19990101
  5. DILANTIN [Suspect]
     Indication: GRAND MAL CONVULSION
     Dosage: 600MG-DAILY-ORAL
     Route: 048
  6. DILANTIN [Suspect]
     Indication: PETIT MAL EPILEPSY
     Dosage: 600MG-DAILY-ORAL
     Route: 048

REACTIONS (7)
  - ARTHRITIS [None]
  - BLOOD PRESSURE SYSTOLIC INCREASED [None]
  - HEMIPLEGIA [None]
  - MYOCARDIAL INFARCTION [None]
  - NERVE INJURY [None]
  - PANIC ATTACK [None]
  - TACHYCARDIA [None]
